FAERS Safety Report 8266785 (Version 6)
Quarter: 2012Q4

REPORT INFORMATION
  Report Type: Report from Study
  Country: GB (occurrence: GB)
  Receive Date: 20111129
  Receipt Date: 20121019
  Transmission Date: 20130627
  Serious: Yes (Death, Hospitalization)
  Sender: FDA-Public Use
  Company Number: GB-SANOFI-AVENTIS-2011SA077058

PATIENT
  Age: 46 Year
  Sex: Female
  Weight: 59 kg

DRUGS (18)
  1. DOCETAXEL [Suspect]
     Indication: HER-2 POSITIVE BREAST CANCER
     Route: 042
     Dates: start: 20100618, end: 20100718
  2. DOCETAXEL [Suspect]
     Indication: HER-2 POSITIVE BREAST CANCER
     Route: 042
     Dates: start: 20100618, end: 20100718
  3. BEVACIZUMAB [Suspect]
     Indication: HER-2 POSITIVE BREAST CANCER
     Dosage: dose level: 15mg/kg , form : vials
     Route: 042
     Dates: start: 20100618, end: 20100718
  4. TRASTUZUMAB [Suspect]
     Indication: HER-2 POSITIVE BREAST CANCER
     Dosage: total dose : 472.5 mg form : vial, loading dose
     Route: 042
     Dates: start: 20100617
  5. TRASTUZUMAB [Suspect]
     Indication: HER-2 POSITIVE BREAST CANCER
     Dosage: total dose : 472.5 mg form : vial, loading dose
     Route: 042
     Dates: start: 20100617
  6. TRASTUZUMAB [Suspect]
     Indication: HER-2 POSITIVE BREAST CANCER
     Dosage: maintenance dose
     Route: 042
     Dates: end: 20100718
  7. TRASTUZUMAB [Suspect]
     Indication: HER-2 POSITIVE BREAST CANCER
     Dosage: maintenance dose
     Route: 042
     Dates: end: 20100718
  8. CARBOPLATIN [Suspect]
     Indication: HER-2 POSITIVE BREAST CANCER
     Dosage: dose level : 6AUC , Form :vials
     Route: 042
     Dates: start: 20100618, end: 20100718
  9. METOCLOPRAMIDE [Concomitant]
     Indication: NAUSEA
     Route: 048
     Dates: start: 20100618, end: 20100716
  10. FLUCONAZOLE [Concomitant]
     Indication: ORAL CANDIDIASIS
     Route: 048
     Dates: start: 20100709, end: 20100716
  11. FLUCONAZOLE [Concomitant]
     Indication: ORAL CANDIDIASIS
     Route: 048
     Dates: start: 20100716, end: 20100726
  12. MEROPENEM [Concomitant]
     Dates: start: 20100716, end: 20100726
  13. METRONIDAZOLE [Concomitant]
     Dates: start: 20100716, end: 20100719
  14. VANCOMYCIN [Concomitant]
     Dates: start: 20100716, end: 20100718
  15. DEXAMETHASONE [Concomitant]
     Indication: CHEMOTHERAPY
     Route: 048
     Dates: start: 20100618, end: 20100716
  16. APREPITANT [Concomitant]
     Indication: CHEMOTHERAPY
     Dosage: frequency: 1 hour pre-chemotherapy
     Route: 048
     Dates: start: 20100709, end: 20100709
  17. APREPITANT [Concomitant]
     Indication: CHEMOTHERAPY
     Dosage: frequency: 1 hour pre-chemotherapy
     Route: 048
     Dates: start: 20100710, end: 20100711
  18. FILGRASTIM [Concomitant]
     Indication: NEUTROPENIA
     Route: 058
     Dates: start: 20100713, end: 20100716

REACTIONS (10)
  - Intestinal ischaemia [Fatal]
  - Endotracheal intubation [Fatal]
  - Pleural effusion [Fatal]
  - Peritonitis [Fatal]
  - Neutropenic sepsis [Recovered/Resolved]
  - Abdominal sepsis [Recovered/Resolved]
  - Febrile neutropenia [Recovered/Resolved]
  - Diarrhoea [Recovered/Resolved]
  - Disseminated intravascular coagulation [Recovered/Resolved]
  - Abdominal pain [Recovered/Resolved]
